FAERS Safety Report 4846106-4 (Version None)
Quarter: 2005Q4

REPORT INFORMATION
  Report Type: 
  Country: None (occurrence: None)
  Receive Date: 20051201
  Receipt Date: 20051124
  Transmission Date: 20060501
  Serious: Yes (Other)
  Sender: FDA-Public Use
  Company Number: 2005146050

PATIENT
  Age: 46 Year
  Sex: Male

DRUGS (9)
  1. LIPITOR [Suspect]
     Indication: HYPERLIPIDAEMIA
     Dosage: 10 MG (10 MG, 1 IN 1 D), ORAL
     Route: 048
     Dates: start: 20030813, end: 20051018
  2. ALLOPURINOL [Concomitant]
  3. TROXIPIDE (TROXIPIDE) [Concomitant]
  4. TANKARU (CALCIUM CARBONATE) [Concomitant]
  5. FAMOTIDINE [Concomitant]
  6. SEVELAMER HYDROCHLORIDE (SEVELAMER HYDROCHLORIDE) [Concomitant]
  7. SENNOSIDE A (SENNOSIDE A) [Concomitant]
  8. ETIZOLAM (ETIZOLAM) [Concomitant]
  9. ROCALTROL [Concomitant]

REACTIONS (3)
  - DIALYSIS [None]
  - LOSS OF CONSCIOUSNESS [None]
  - RHABDOMYOLYSIS [None]
